FAERS Safety Report 9550606 (Version 1)
Quarter: 2013Q3

REPORT INFORMATION
  Report Type: Spontaneous
  Country: US (occurrence: US)
  Receive Date: 20130924
  Receipt Date: 20130924
  Transmission Date: 20140515
  Serious: No
  Sender: FDA-Public Use
  Company Number: US-SANOFI-AVENTIS-2013SA001888

PATIENT
  Sex: Female

DRUGS (20)
  1. AUBAGIO [Suspect]
     Indication: MULTIPLE SCLEROSIS
     Route: 048
     Dates: start: 20130108, end: 20130601
  2. AUBAGIO [Suspect]
     Indication: MULTIPLE SCLEROSIS
     Route: 048
     Dates: start: 20130603, end: 20130604
  3. CYMBALTA [Concomitant]
     Route: 065
  4. SINGULAIR [Concomitant]
     Route: 065
  5. MOTRIN IB [Concomitant]
     Route: 065
  6. SYNTHROID [Concomitant]
     Route: 065
  7. TERAZOSIN [Concomitant]
     Route: 065
  8. VALIUM [Concomitant]
     Route: 065
  9. FLOVENT [Concomitant]
     Route: 065
  10. TIZANIDINE HYDROCHLORIDE [Concomitant]
     Route: 065
  11. ALBUTEROL [Concomitant]
     Route: 045
  12. NEBIVOLOL [Concomitant]
     Route: 065
  13. VITAMIN D [Concomitant]
     Dosage: DOSE:1000 UNIT(S)
     Route: 065
  14. WELLBUTRIN [Concomitant]
     Route: 065
  15. COENZYME Q10 [Concomitant]
  16. VITAMIN B [Concomitant]
     Dosage: DOSE-100
     Route: 065
  17. VITAMIN C [Concomitant]
     Route: 065
  18. GLUCOSAMINE HYDROCHLORIDE [Concomitant]
     Route: 065
  19. CALCIUM W/MAGNESIUM/VITAMIN D [Concomitant]
     Route: 065
  20. ASPIRIN [Concomitant]
     Route: 065

REACTIONS (11)
  - Respiratory disorder [Not Recovered/Not Resolved]
  - Asthma [Unknown]
  - Headache [Recovered/Resolved]
  - Respiratory tract infection [Recovering/Resolving]
  - Drug hypersensitivity [Unknown]
  - Dyspnoea [Not Recovered/Not Resolved]
  - Wheezing [Not Recovered/Not Resolved]
  - Cough [Recovering/Resolving]
  - Drug dose omission [Unknown]
  - Alopecia [Unknown]
  - Diarrhoea [Unknown]
